FAERS Safety Report 6020740-0 (Version None)
Quarter: 2008Q4

REPORT INFORMATION
  Report Type: 
  Country: None (occurrence: None)
  Receive Date: 20081229
  Receipt Date: 20081222
  Transmission Date: 20090506
  Serious: Yes (Death, Other)
  Sender: FDA-Public Use
  Company Number: US-BRISTOL-MYERS SQUIBB COMPANY-14443808

PATIENT
  Sex: Female

DRUGS (1)
  1. ORENCIA [Suspect]
     Dosage: RECENT INFUSION ON 26-NOV-2008
     Dates: start: 20080201

REACTIONS (4)
  - DEATH [None]
  - DYSPNOEA [None]
  - INFLUENZA LIKE ILLNESS [None]
  - VOMITING [None]
